FAERS Safety Report 20663257 (Version 2)
Quarter: 2022Q4

REPORT INFORMATION
  Report Type: Report from Study
  Country: CH (occurrence: CH)
  Receive Date: 20220401
  Receipt Date: 20221027
  Transmission Date: 20230113
  Serious: Yes (Life-Threatening, Hospitalization)
  Sender: FDA-Public Use
  Company Number: CH-NOVARTISPH-NVSC2022CH072419

PATIENT
  Age: 90 Year
  Sex: Female

DRUGS (9)
  1. IMATINIB [Suspect]
     Active Substance: IMATINIB
     Indication: COVID-19
     Dosage: 400 MG
     Route: 048
     Dates: start: 20220321, end: 20220323
  2. ASPIRIN [Concomitant]
     Active Substance: ASPIRIN
     Indication: Coronary artery disease
     Dosage: 100 MG (1X 100 MG)
     Route: 048
     Dates: start: 20220321
  3. BISOPROLOL [Concomitant]
     Active Substance: BISOPROLOL
     Indication: Coronary artery disease
     Dosage: 75 MG (1X 75 MG)
     Route: 048
     Dates: start: 20220321
  4. DEXAMETHASONE [Concomitant]
     Active Substance: DEXAMETHASONE
     Indication: COVID-19
     Dosage: 6 MG (1X 6 MG)
     Route: 048
     Dates: start: 20220321, end: 20220323
  5. ATACAND [Concomitant]
     Active Substance: CANDESARTAN CILEXETIL
     Indication: Coronary artery disease
     Dosage: 8 MG (1X 8MG)
     Route: 048
     Dates: start: 20220323
  6. FONDAPARINUX [Concomitant]
     Active Substance: FONDAPARINUX
     Indication: COVID-19
     Dosage: 2.5 MG (1X2.5MG)
     Route: 065
     Dates: start: 20220323, end: 20220327
  7. FONDAPARINUX [Concomitant]
     Active Substance: FONDAPARINUX
     Indication: Coronary artery disease
  8. TICAGRELOR [Concomitant]
     Active Substance: TICAGRELOR
     Indication: Coronary artery disease
     Dosage: 90 MG (1X90MG)
     Route: 065
     Dates: start: 20220323
  9. TORSEMIDE [Concomitant]
     Active Substance: TORSEMIDE
     Indication: Coronary artery disease
     Dosage: 10 MG (1X10MG)
     Route: 065
     Dates: start: 20220323

REACTIONS (2)
  - Troponin increased [Not Recovered/Not Resolved]
  - Blood creatine phosphokinase MB increased [Not Recovered/Not Resolved]

NARRATIVE: CASE EVENT DATE: 20220323
